FAERS Safety Report 6371677-9 (Version None)
Quarter: 2009Q3

REPORT INFORMATION
  Report Type: 
  Country: None (occurrence: None)
  Receive Date: 20090923
  Receipt Date: 20081002
  Transmission Date: 20100115
  Serious: No
  Sender: FDA-Public Use
  Company Number: US-ASTRAZENECA-2008UW12265

PATIENT
  Age: 52 Year
  Sex: Female
  Weight: 113.4 kg

DRUGS (6)
  1. SEROQUEL [Suspect]
     Indication: DEPRESSION
     Dosage: 200MG, 300MG
     Route: 048
     Dates: start: 20030801, end: 20031201
  2. MERIDIA [Concomitant]
  3. WELLBUTRIN SR [Concomitant]
  4. LEXAPRO [Concomitant]
  5. CYMBALTA [Concomitant]
  6. PROZAC [Concomitant]

REACTIONS (3)
  - BLOOD CHOLESTEROL INCREASED [None]
  - OBESITY [None]
  - TYPE 2 DIABETES MELLITUS [None]
